FAERS Safety Report 4661293-9 (Version None)
Quarter: 2005Q2

REPORT INFORMATION
  Report Type: 
  Country: None (occurrence: None)
  Receive Date: 20050511
  Receipt Date: 20050428
  Transmission Date: 20051028
  Serious: Yes (Life-Threatening)
  Sender: FDA-Public Use
  Company Number: 200510106BYL

PATIENT
  Age: 83 Year
  Sex: Male
  Weight: 51 kg

DRUGS (11)
  1. ASPIRIN [Suspect]
     Indication: ANGINA PECTORIS
     Dosage: 200 MG, TOTAL DAILY, ORAL
     Route: 048
     Dates: start: 20050104, end: 20050302
  2. SIGMART (NICORANDIL) [Suspect]
     Indication: ANGINA PECTORIS
     Dosage: 15 MG, TOTAL DAILY, ORAL
     Route: 048
     Dates: start: 20050104
  3. DIOVAN [Suspect]
     Indication: HYPERTENSION
     Dosage: QD, ORAL
     Route: 047
     Dates: start: 20050104, end: 20050224
  4. TICLOPIDINE HCL [Suspect]
     Indication: ANGINA PECTORIS
     Dosage: SEE IMAGE
     Route: 048
     Dates: end: 20050103
  5. TICLOPIDINE HCL [Suspect]
     Indication: ANGINA PECTORIS
     Dosage: SEE IMAGE
     Route: 048
     Dates: start: 20050104, end: 20050224
  6. SELBEX [Concomitant]
  7. PLETAL [Concomitant]
  8. ARTIST [Concomitant]
  9. FUNGIZONE [Concomitant]
  10. TAKEPRON [Concomitant]
  11. GASTER D [Concomitant]

REACTIONS (6)
  - CORONARY ARTERIAL STENT INSERTION [None]
  - DISSEMINATED INTRAVASCULAR COAGULATION [None]
  - HEPATIC FAILURE [None]
  - HISTIOCYTOSIS HAEMATOPHAGIC [None]
  - RENAL FAILURE ACUTE [None]
  - THROMBOCYTOPENIA [None]
